FAERS Safety Report 8153290-6 (Version None)
Quarter: 2012Q1

REPORT INFORMATION
  Report Type: 
  Country: None (occurrence: None)
  Receive Date: 20120221
  Receipt Date: 20120216
  Transmission Date: 20120608
  Serious: Yes (Other)
  Sender: FDA-Public Use
  Company Number: JP-US-EMD SERONO, INC.-7113846

PATIENT
  Sex: Female
  Weight: 52 kg

DRUGS (5)
  1. GONAL-F RFF PEN [Suspect]
     Indication: OVULATION INDUCTION
     Route: 058
  2. GONAL-F RFF PEN [Suspect]
     Route: 058
  3. CHORIONIC GONADOTROPIN [Concomitant]
     Indication: PRODUCT USED FOR UNKNOWN INDICATION
     Dates: start: 20010701, end: 20100701
  4. GONAL-F RFF PEN [Suspect]
     Indication: POLYCYSTIC OVARIES
     Route: 058
     Dates: start: 20100701
  5. METFORMIN HCL [Concomitant]
     Indication: PRODUCT USED FOR UNKNOWN INDICATION
     Route: 048
     Dates: start: 20100708, end: 20100819

REACTIONS (4)
  - UMBILICAL CORD PROLAPSE [None]
  - CAESAREAN SECTION [None]
  - FOETAL DEATH [None]
  - MATERNAL EXPOSURE DURING PREGNANCY [None]
